FAERS Safety Report 8036271-2 (Version None)
Quarter: 2012Q1

REPORT INFORMATION
  Report Type: 
  Country: None (occurrence: None)
  Receive Date: 20120111
  Receipt Date: 20120103
  Transmission Date: 20120608
  Serious: Yes (Hospitalization)
  Sender: FDA-Public Use
  Company Number: US-US-EMD SERONO, INC.-7104796

PATIENT
  Sex: Male

DRUGS (11)
  1. LORAZEPAM [Concomitant]
  2. LEXAPRO [Concomitant]
  3. PREVACID [Concomitant]
  4. LIPITOR [Concomitant]
  5. BACLOFEN [Concomitant]
  6. SEROQUEL [Concomitant]
  7. IRON [Concomitant]
     Indication: MINERAL SUPPLEMENTATION
  8. REBIF [Suspect]
     Indication: MULTIPLE SCLEROSIS
     Route: 058
     Dates: start: 20040915
  9. FLOMAX [Concomitant]
  10. CYCLOBENZAPRINE [Concomitant]
  11. ABILIFY [Concomitant]

REACTIONS (3)
  - INTESTINAL OBSTRUCTION [None]
  - FEELING ABNORMAL [None]
  - CHEST PAIN [None]
